FAERS Safety Report 13610431 (Version 1)
Quarter: 2017Q2

REPORT INFORMATION
  Report Type: Spontaneous
  Country: HR (occurrence: HR)
  Receive Date: 20170605
  Receipt Date: 20170605
  Transmission Date: 20170830
  Serious: Yes (Hospitalization)
  Sender: FDA-Public Use
  Company Number: HR-GLAXOSMITHKLINE-HR2017GSK084058

PATIENT
  Age: 69 Year
  Sex: Female

DRUGS (2)
  1. VOLTAREN FORTE [Suspect]
     Active Substance: DICLOFENAC SODIUM
     Indication: MUSCULOSKELETAL PAIN
     Dosage: 50 MG, QD
     Route: 048
     Dates: start: 20081109
  2. VOLTAREN [Suspect]
     Active Substance: DICLOFENAC SODIUM
     Indication: MUSCULOSKELETAL PAIN
     Dosage: UNK
     Route: 061
     Dates: start: 20081109

REACTIONS (4)
  - Dyspnoea [Unknown]
  - Choking sensation [Unknown]
  - Application site swelling [Unknown]
  - Application site erythema [Unknown]

NARRATIVE: CASE EVENT DATE: 20081109
